FAERS Safety Report 8314364-X (Version None)
Quarter: 2012Q2

REPORT INFORMATION
  Report Type: 
  Country: None (occurrence: None)
  Receive Date: 20120426
  Receipt Date: 20120419
  Transmission Date: 20120825
  Serious: Yes (Death, Hospitalization)
  Sender: FDA-Public Use
  Company Number: DE-ROCHE-1023500

PATIENT
  Age: 48 Year
  Sex: Male
  Weight: 85 kg

DRUGS (4)
  1. FLUOROURACIL [Concomitant]
     Indication: GASTRIC CANCER
     Route: 042
     Dates: start: 20110209, end: 20110413
  2. CISPLATIN [Concomitant]
     Indication: GASTRIC CANCER
     Route: 042
     Dates: start: 20110209, end: 20110413
  3. HERCEPTIN [Suspect]
     Indication: GASTRIC CANCER
     Route: 042
     Dates: start: 20110302, end: 20110809
  4. DOCETAXEL [Concomitant]
     Indication: GASTRIC CANCER
     Route: 042
     Dates: start: 20110209, end: 20110413

REACTIONS (3)
  - UPPER GASTROINTESTINAL HAEMORRHAGE [None]
  - NEOPLASM MALIGNANT [None]
  - SKIN INFECTION [None]
